FAERS Safety Report 24553899 (Version 1)
Quarter: 2024Q4

REPORT INFORMATION
  Report Type: Spontaneous
  Country: BE (occurrence: BE)
  Receive Date: 20241028
  Receipt Date: 20241028
  Transmission Date: 20250115
  Serious: Yes (Hospitalization)
  Sender: TAKEDA
  Company Number: BE-TAKEDA-2024TUS107303

PATIENT
  Age: 27 Year
  Sex: Female
  Weight: 60 kg

DRUGS (4)
  1. TEDUGLUTIDE [Suspect]
     Active Substance: TEDUGLUTIDE
     Indication: Product used for unknown indication
     Dosage: 0.3 MILLILITER, QD
     Route: 065
     Dates: start: 20211014
  2. TEDUGLUTIDE [Suspect]
     Active Substance: TEDUGLUTIDE
     Indication: Product used for unknown indication
     Dosage: 0.3 MILLILITER, QD
     Route: 065
     Dates: start: 20211014
  3. TEDUGLUTIDE [Suspect]
     Active Substance: TEDUGLUTIDE
     Indication: Product used for unknown indication
     Dosage: 0.3 MILLILITER, QD
     Route: 065
     Dates: start: 20211014
  4. TEDUGLUTIDE [Suspect]
     Active Substance: TEDUGLUTIDE
     Indication: Product used for unknown indication
     Dosage: 0.3 MILLILITER, QD
     Route: 065
     Dates: start: 20211014

REACTIONS (12)
  - Faecal volume decreased [Unknown]
  - Obstruction [Unknown]
  - Urine output fluctuation [Unknown]
  - Weight fluctuation [Unknown]
  - Gastrointestinal stoma output decreased [Unknown]
  - Thirst decreased [Unknown]
  - Oedema [Unknown]
  - Abdominal distension [Unknown]
  - Vomiting [Unknown]
  - Injection site pain [Unknown]
  - Abdominal pain [Unknown]
  - Product use issue [Unknown]
